FAERS Safety Report 8586537-2 (Version None)
Quarter: 2012Q3

REPORT INFORMATION
  Report Type: 
  Country: None (occurrence: None)
  Receive Date: 20120810
  Receipt Date: 20120806
  Transmission Date: 20120928
  Serious: Yes (Other)
  Sender: FDA-Public Use
  Company Number: TR-AMGEN-TURSP2012008370

PATIENT
  Age: 55 Year
  Sex: Female

DRUGS (3)
  1. CORTISONE ACETATE [Suspect]
     Dosage: UNK
     Dates: start: 20111001
  2. ENBREL [Suspect]
     Indication: RHEUMATOID ARTHRITIS
     Dosage: 50 MG, WEEKLY
     Route: 058
     Dates: start: 20110109, end: 20120608
  3. ENBREL [Suspect]
     Dosage: 50 MG, WEEKLY
     Route: 058
     Dates: start: 20120725

REACTIONS (14)
  - INJECTION SITE INJURY [None]
  - INJECTION SITE PRURITUS [None]
  - CALCINOSIS [None]
  - GAIT DISTURBANCE [None]
  - RED BLOOD CELL SEDIMENTATION RATE INCREASED [None]
  - CONDITION AGGRAVATED [None]
  - OSTEOLYSIS [None]
  - ABSCESS [None]
  - INJECTION SITE ERYTHEMA [None]
  - INJECTION SITE VESICLES [None]
  - CARTILAGE ATROPHY [None]
  - JOINT RANGE OF MOTION DECREASED [None]
  - SWELLING [None]
  - OEDEMA PERIPHERAL [None]
